FAERS Safety Report 4657482-X (Version None)
Quarter: 2005Q2

REPORT INFORMATION
  Report Type: 
  Country: None (occurrence: None)
  Receive Date: 20050506
  Receipt Date: 20050429
  Transmission Date: 20051028
  Serious: Yes (Other)
  Sender: FDA-Public Use
  Company Number: 2005-05-0022

PATIENT
  Age: 75 Year
  Sex: Female

DRUGS (4)
  1. CLARITIN [Suspect]
     Indication: LACRIMATION INCREASED
     Dosage: 1 TAB QD ORAL
     Route: 048
     Dates: start: 20050417, end: 20050426
  2. CLARITIN [Suspect]
     Indication: NASAL CONGESTION
     Dosage: 1 TAB QD ORAL
     Route: 048
     Dates: start: 20050417, end: 20050426
  3. SYNTHROID [Concomitant]
  4. VITAMINS/MINERALS/DIETARY SUPPLEMENTS (NOS) [Concomitant]

REACTIONS (2)
  - EPISTAXIS [None]
  - SYNCOPE [None]
